FAERS Safety Report 6457566-X (Version None)
Quarter: 2009Q4

REPORT INFORMATION
  Report Type: 
  Country: None (occurrence: None)
  Receive Date: 20091125
  Receipt Date: 20091113
  Transmission Date: 20100525
  Serious: Yes (Other)
  Sender: FDA-Public Use
  Company Number: PHEH2009US16121

PATIENT
  Sex: Female

DRUGS (1)
  1. STARLIX [Suspect]
     Dosage: UNK

REACTIONS (2)
  - GASTRIC BYPASS [None]
  - GASTRIC DISORDER [None]
